FAERS Safety Report 7438862-6 (Version None)
Quarter: 2011Q2

REPORT INFORMATION
  Report Type: 
  Country: None (occurrence: None)
  Receive Date: 20110426
  Receipt Date: 20110421
  Transmission Date: 20111010
  Serious: Yes (Hospitalization, Disabling, Other)
  Sender: FDA-Public Use
  Company Number: US-MERCK-0808USA04224

PATIENT
  Age: 64 Year
  Sex: Female
  Weight: 56 kg

DRUGS (5)
  1. EVISTA [Suspect]
     Route: 065
  2. RECLAST [Suspect]
     Route: 065
  3. FOSAMAX [Suspect]
     Indication: OSTEOPOROSIS
     Route: 048
     Dates: start: 19960603, end: 19990705
  4. FOSAMAX [Suspect]
     Route: 048
     Dates: start: 20000920, end: 20060501
  5. FORTEO [Suspect]
     Route: 065
     Dates: end: 20090101

REACTIONS (52)
  - ADVERSE EVENT [None]
  - UTERINE PROLAPSE [None]
  - ABSCESS [None]
  - COLONIC POLYP [None]
  - MELANOSIS COLI [None]
  - UTERINE DISORDER [None]
  - DYSPEPSIA [None]
  - PAIN [None]
  - JAW DISORDER [None]
  - DENTAL CARIES [None]
  - PSEUDOMONAS INFECTION [None]
  - HAEMORRHOIDS [None]
  - BREAST DISORDER [None]
  - COUGH [None]
  - DIVERTICULUM [None]
  - OSTEOMALACIA [None]
  - NAUSEA [None]
  - DERMATITIS [None]
  - OSTEONECROSIS OF JAW [None]
  - CONSTIPATION [None]
  - EXOSTOSIS [None]
  - CYSTOCELE [None]
  - ORAL HERPES [None]
  - PULMONARY FIBROSIS [None]
  - TEMPOROMANDIBULAR JOINT SYNDROME [None]
  - STRESS URINARY INCONTINENCE [None]
  - RHINORRHOEA [None]
  - GINGIVAL DISORDER [None]
  - GASTROOESOPHAGEAL REFLUX DISEASE [None]
  - BRONCHITIS [None]
  - ATELECTASIS [None]
  - DEPRESSION [None]
  - ARTHRALGIA [None]
  - HYPOAESTHESIA [None]
  - MOUTH ULCERATION [None]
  - SOFT TISSUE NECROSIS [None]
  - CATARACT [None]
  - DECREASED APPETITE [None]
  - DRUG HYPERSENSITIVITY [None]
  - POLLAKIURIA [None]
  - IMPAIRED HEALING [None]
  - HYPERTENSION [None]
  - BONE DISORDER [None]
  - CHEST PAIN [None]
  - SPINAL COMPRESSION FRACTURE [None]
  - DYSURIA [None]
  - DIVERTICULITIS [None]
  - ORAL INFECTION [None]
  - LYMPHADENOPATHY MEDIASTINAL [None]
  - URINARY TRACT INFECTION [None]
  - TOOTH FRACTURE [None]
  - FIBROADENOMA OF BREAST [None]
